FAERS Safety Report 4924473-0 (Version None)
Quarter: 2006Q1

REPORT INFORMATION
  Report Type: 
  Country: None (occurrence: None)
  Receive Date: 20060221
  Receipt Date: 20060206
  Transmission Date: 20060701
  Serious: Yes (Death)
  Sender: FDA-Public Use
  Company Number: S06-USA-00507-01

PATIENT
  Age: 30 Year
  Sex: Male
  Weight: 90.7194 kg

DRUGS (4)
  1. LEXAPRO [Suspect]
     Indication: SCHIZOTYPAL PERSONALITY DISORDER
     Dosage: 10 MG QD, PO
     Route: 048
     Dates: start: 20051001, end: 20060204
  2. KLONOPIN (BUPROPION HYDROCHLORIDE) [Concomitant]
  3. WELLBUTRIN [Concomitant]
  4. AMBIEN [Concomitant]

REACTIONS (4)
  - COMPLETED SUICIDE [None]
  - GUN SHOT WOUND [None]
  - INCORRECT DOSE ADMINISTERED [None]
  - TREATMENT NONCOMPLIANCE [None]
